FAERS Safety Report 19984851 (Version 1)
Quarter: 2021Q4

REPORT INFORMATION
  Report Type: Spontaneous
  Country: NP (occurrence: NP)
  Receive Date: 20211021
  Receipt Date: 20211021
  Transmission Date: 20220303
  Serious: Yes (Hospitalization, Other)
  Sender: FDA-Public Use
  Company Number: NP-INSUD PHARMA-2110NP02370

PATIENT

DRUGS (5)
  1. NUVESSA [Suspect]
     Active Substance: METRONIDAZOLE
     Indication: Hepatic amoebiasis
     Dosage: 400 MILLIGRAM, THRICE A DAY
     Route: 065
  2. DILOXANIDE FUROATE\METRONIDAZOLE [Suspect]
     Active Substance: DILOXANIDE FUROATE\METRONIDAZOLE
     Indication: Hepatic amoebiasis
     Dosage: 500 MG + 400 MG THRICE A DAY
     Route: 065
  3. LEVOFLOXACIN [Concomitant]
     Active Substance: LEVOFLOXACIN
     Indication: Hepatic amoebiasis
     Dosage: TABLET
     Route: 048
  4. METFORMIN [Concomitant]
     Active Substance: METFORMIN HYDROCHLORIDE
     Indication: Type 2 diabetes mellitus
     Dosage: 850 MILLIGRAM, TWICE A DAY FOR 3 YEARS
  5. AMLODIPINE [Concomitant]
     Active Substance: AMLODIPINE BESYLATE
     Indication: Hypertension
     Dosage: 2.5 MILLIGRAM FOR 2 MONTHS

REACTIONS (4)
  - Neurotoxicity [Recovered/Resolved]
  - Dysarthria [Recovered/Resolved]
  - Dizziness [Recovered/Resolved]
  - Dysdiadochokinesis [Recovered/Resolved]
